FAERS Safety Report 20784654 (Version 3)
Quarter: 2022Q2

REPORT INFORMATION
  Report Type: Spontaneous
  Country: JP (occurrence: JP)
  Receive Date: 20220504
  Receipt Date: 20220607
  Transmission Date: 20220720
  Serious: Yes (Death, Hospitalization)
  Sender: FDA-Public Use
  Company Number: JP-PFIZER INC-202200645216

PATIENT
  Age: 84 Year
  Sex: Female
  Weight: 40 kg

DRUGS (3)
  1. PAXLOVID [Suspect]
     Active Substance: NIRMATRELVIR\RITONAVIR
     Indication: COVID-19 treatment
     Dosage: 300/100 MG, 2X/DAY
     Route: 048
     Dates: start: 20220426, end: 20220428
  2. BIAPENEM [Concomitant]
     Active Substance: BIAPENEM
     Indication: Pneumonia
     Dosage: 300 MG, 2X/DAY
     Route: 042
     Dates: start: 20220425, end: 20220429
  3. VANCOMYCIN [Concomitant]
     Active Substance: VANCOMYCIN
     Indication: Pneumonia staphylococcal
     Dosage: 500 MG, 2X/DAY
     Route: 042
     Dates: start: 20220425, end: 20220429

REACTIONS (3)
  - Pneumonia aspiration [Fatal]
  - Cardiac arrest [Unknown]
  - Drug ineffective [Unknown]

NARRATIVE: CASE EVENT DATE: 20220429
